FAERS Safety Report 21927396 (Version 4)
Quarter: 2023Q1

REPORT INFORMATION
  Report Type: Spontaneous
  Country: ES (occurrence: None)
  Receive Date: 20230130
  Receipt Date: 20230206
  Transmission Date: 20230418
  Serious: Yes (Death, Other)
  Sender: FDA-Public Use
  Company Number: 2023A023761

PATIENT
  Age: 86 Year
  Sex: Female

DRUGS (3)
  1. TAGRISSO [Suspect]
     Active Substance: OSIMERTINIB
     Route: 048
  2. ALIMTA [Concomitant]
     Active Substance: PEMETREXED DISODIUM
  3. COVID VACCINES [Concomitant]

REACTIONS (11)
  - Death [Fatal]
  - Metastases to bone [Unknown]
  - Plasma cell myeloma [Unknown]
  - Blood creatinine increased [Unknown]
  - Drug ineffective [Unknown]
  - Fatigue [Unknown]
  - Ingrowing nail [Unknown]
  - Photophobia [Unknown]
  - Hair colour changes [Unknown]
  - Rash [Unknown]
  - Alopecia [Unknown]
